FAERS Safety Report 6269307-X (Version None)
Quarter: 2009Q3

REPORT INFORMATION
  Report Type: 
  Country: None (occurrence: None)
  Receive Date: 20090713
  Receipt Date: 20090629
  Transmission Date: 20100115
  Serious: Yes (Death, Other)
  Sender: FDA-Public Use
  Company Number: POMP-1000543

PATIENT
  Age: 4 Year
  Sex: Female

DRUGS (1)
  1. MYOZYME [Suspect]
     Indication: GLYCOGEN STORAGE DISEASE TYPE II
     Dosage: 20 MG/KG, Q2W, INTRAVENOUS
     Route: 042
     Dates: start: 20050324, end: 20090526

REACTIONS (45)
  - ABDOMINAL DISTENSION [None]
  - ANAEMIA [None]
  - ASCITES [None]
  - ATELECTASIS [None]
  - BEDRIDDEN [None]
  - BRADYCARDIA [None]
  - CANDIDIASIS [None]
  - CARDIAC ARREST [None]
  - CHOLELITHIASIS [None]
  - DIARRHOEA [None]
  - DYSPNOEA [None]
  - ECTOPIC ANTIDIURETIC HORMONE SECRETION [None]
  - ENTEROCOCCAL INFECTION [None]
  - ERYTHEMA [None]
  - ESCHERICHIA INFECTION [None]
  - FEBRILE NEUTROPENIA [None]
  - FEMUR FRACTURE [None]
  - GAZE PALSY [None]
  - GLYCOGEN STORAGE DISEASE TYPE II [None]
  - HAEMATEMESIS [None]
  - HAEMOPTYSIS [None]
  - HORDEOLUM [None]
  - HUMERUS FRACTURE [None]
  - HYPERCAPNIA [None]
  - HYPOALBUMINAEMIA [None]
  - HYPOTENSION [None]
  - IMPAIRED GASTRIC EMPTYING [None]
  - JOINT DISLOCATION [None]
  - JOINT SWELLING [None]
  - LABILE BLOOD PRESSURE [None]
  - LOBAR PNEUMONIA [None]
  - LUNG INFILTRATION [None]
  - NEUTROPENIA [None]
  - OSTEOPOROSIS [None]
  - OXYGEN SATURATION DECREASED [None]
  - PELVIC FLUID COLLECTION [None]
  - PERICARDIAL EFFUSION [None]
  - PLEURAL EFFUSION [None]
  - PULMONARY OEDEMA [None]
  - RESPIRATORY FAILURE [None]
  - TACHYCARDIA [None]
  - UPPER GASTROINTESTINAL HAEMORRHAGE [None]
  - URINARY TRACT INFECTION [None]
  - VAGINAL INFECTION [None]
  - VISUAL IMPAIRMENT [None]
